FAERS Safety Report 6316916-5 (Version None)
Quarter: 2009Q3

REPORT INFORMATION
  Report Type: 
  Country: None (occurrence: None)
  Receive Date: 20090820
  Receipt Date: 20090811
  Transmission Date: 20100115
  Serious: Yes (Other)
  Sender: FDA-Public Use
  Company Number: DE-PFIZER INC-2009230615

PATIENT
  Age: 28 Year

DRUGS (1)
  1. ZELDOX [Suspect]
     Dosage: 20 MG, 2X/DAY
     Route: 048
     Dates: start: 20040826

REACTIONS (2)
  - DRUG DEPENDENCE [None]
  - VERTIGO [None]
